FAERS Safety Report 5159270-7 (Version None)
Quarter: 2006Q4

REPORT INFORMATION
  Report Type: 
  Country: None (occurrence: None)
  Receive Date: 20061117
  Receipt Date: 20061107
  Transmission Date: 20070319
  Serious: Yes (Death, Hospitalization, Other)
  Sender: FDA-Public Use
  Company Number: 2006099803

PATIENT
  Age: 70 Year
  Sex: Male

DRUGS (6)
  1. SUTENT [Suspect]
     Indication: RENAL CELL CARCINOMA STAGE UNSPECIFIED
     Dosage: 50 MG (50 MG, EVERY DAY), ORAL
     Route: 048
     Dates: start: 20060712, end: 20060805
  2. CLODRONATE DISODIUM                              (CLODRONATE DISODIUM) [Concomitant]
  3. DEXAMETHASONE TAB [Concomitant]
  4. DOXAZOSIN              (DOXAZOSIN) [Concomitant]
  5. OMEPRADEX                    (OMEPRAZOLE) [Concomitant]
  6. OXYCONTIN                  (OXYCONTIN HYDROCHLORIDE) [Concomitant]

REACTIONS (8)
  - DEHYDRATION [None]
  - DIALYSIS [None]
  - METASTASES TO BONE [None]
  - METASTASES TO LUNG [None]
  - METASTATIC NEOPLASM [None]
  - RENAL FAILURE ACUTE [None]
  - THROMBOCYTOPENIA [None]
  - VOMITING [None]
